FAERS Safety Report 4358568-X (Version None)
Quarter: 2004Q2

REPORT INFORMATION
  Report Type: 
  Country: None (occurrence: None)
  Receive Date: 20040512
  Receipt Date: 20040506
  Transmission Date: 20050107
  Serious: Yes (Hospitalization)
  Sender: FDA-Public Use
  Company Number: 2003-11-0998

PATIENT
  Age: 58 Year
  Sex: Female
  Weight: 57 kg

DRUGS (3)
  1. PEG-INTRON [Suspect]
     Indication: HEPATITIS C
     Dosage: 80 MCG QWK SUBCUTANEOUS
     Route: 058
     Dates: start: 20030908, end: 20031114
  2. REBETOL [Suspect]
     Indication: HEPATITIS C
     Dosage: 1000 MG QD ORAL
     Route: 048
     Dates: start: 20030908, end: 20031114
  3. PROZAC [Concomitant]

REACTIONS (5)
  - CHEST PAIN [None]
  - DIASTOLIC DYSFUNCTION [None]
  - DYSPNOEA [None]
  - SINUS TACHYCARDIA [None]
  - VENTRICULAR HYPERTROPHY [None]
